FAERS Safety Report 11353753 (Version 1)
Quarter: 2015Q3

REPORT INFORMATION
  Report Type: Spontaneous
  Country: US (occurrence: US)
  Receive Date: 20150807
  Receipt Date: 20150807
  Transmission Date: 20151125
  Serious: No
  Sender: FDA-Public Use
  Company Number: US-JNJFOC-20150616028

PATIENT
  Age: 63 Year
  Sex: Male
  Weight: 72.58 kg

DRUGS (5)
  1. SIMVASTATIN. [Concomitant]
     Active Substance: SIMVASTATIN
     Indication: BLOOD CHOLESTEROL
     Dosage: DAILY, 3 YEARS
     Route: 065
  2. MUTIVITAMINS [Concomitant]
     Indication: ROUTINE HEALTH MAINTENANCE
     Dosage: DAILY, 5 YEARS
     Route: 065
  3. MENS ROGAINE EXTRA STRENGTH [Suspect]
     Active Substance: MINOXIDIL
     Route: 061
  4. PROPECIA [Concomitant]
     Active Substance: FINASTERIDE
     Indication: ALOPECIA
     Dosage: DAILY, YEARS
     Route: 065
  5. MENS ROGAINE EXTRA STRENGTH [Suspect]
     Active Substance: MINOXIDIL
     Indication: ALOPECIA
     Dosage: 1/2 CAP FULL
     Route: 061
     Dates: start: 20150508

REACTIONS (4)
  - Drug administered at inappropriate site [Not Recovered/Not Resolved]
  - Alopecia [Not Recovered/Not Resolved]
  - Hair disorder [Not Recovered/Not Resolved]
  - Wrong technique in product usage process [Not Recovered/Not Resolved]
